FAERS Safety Report 12403839 (Version 1)
Quarter: 2016Q2

REPORT INFORMATION
  Report Type: Report from Study
  Country: US (occurrence: US)
  Receive Date: 20160525
  Receipt Date: 20160525
  Transmission Date: 20160815
  Serious: Yes (Hospitalization, Other)
  Sender: FDA-Public Use
  Company Number: US-BAXTER-2016BAX026462

PATIENT
  Age: 35 Year
  Sex: Male
  Weight: 81.27 kg

DRUGS (82)
  1. TYVASO [Suspect]
     Active Substance: TREPROSTINIL
     Indication: PULMONARY ARTERIAL HYPERTENSION
     Dosage: 9 BREATHS
     Route: 055
     Dates: start: 20131219
  2. LISINOPRIL. [Concomitant]
     Active Substance: LISINOPRIL
     Indication: HYPERTENSION
     Route: 048
     Dates: start: 20141112
  3. PREDNISONE. [Concomitant]
     Active Substance: PREDNISONE
     Route: 065
     Dates: start: 20150131
  4. COLLAGENASE SANTYL [Concomitant]
     Active Substance: COLLAGENASE CLOSTRIDIUM HISTOLYTICUM
     Indication: SKIN ULCER
     Route: 061
     Dates: start: 20110811, end: 20150112
  5. MUPIROCIN. [Concomitant]
     Active Substance: MUPIROCIN
     Indication: SKIN ULCER
     Route: 061
     Dates: start: 20140811, end: 20150112
  6. FISH OIL [Concomitant]
     Active Substance: FISH OIL
     Indication: SUPPLEMENTATION THERAPY
     Route: 048
     Dates: start: 20140101
  7. LEXAPRO [Concomitant]
     Active Substance: ESCITALOPRAM OXALATE
     Indication: ANTIDEPRESSANT THERAPY
     Route: 048
     Dates: start: 20140910
  8. LUCENTIS [Concomitant]
     Active Substance: RANIBIZUMAB
     Indication: MACULAR OEDEMA
     Route: 065
     Dates: start: 20140710
  9. ATROPINE SULFATE. [Concomitant]
     Active Substance: ATROPINE SULFATE
     Indication: VASOCONSTRICTION
     Dosage: ONE INDIVIDUAL DOSE
     Route: 047
  10. ROCURONIUM [Concomitant]
     Active Substance: ROCURONIUM BROMIDE
     Indication: PRODUCT USED FOR UNKNOWN INDICATION
     Route: 065
     Dates: start: 20160311
  11. DEXMEDETOMIDINE. [Concomitant]
     Active Substance: DEXMEDETOMIDINE
     Indication: PRODUCT USED FOR UNKNOWN INDICATION
     Dosage: 4 ML/HR
     Route: 042
     Dates: start: 20160313
  12. HYDROCORTISONE SODIUM SUCCINATE [Concomitant]
     Active Substance: HYDROCORTISONE SODIUM SUCCINATE
     Route: 042
     Dates: start: 20160315
  13. FENTANYL. [Suspect]
     Active Substance: FENTANYL
     Indication: SCLERODERMA
     Dosage: 50 (UNIT NOT REPORTED)
     Route: 062
     Dates: start: 20150225
  14. FENTANYL. [Suspect]
     Active Substance: FENTANYL
     Indication: PAIN OF SKIN
  15. MULTIVITAMIN [Concomitant]
     Active Substance: VITAMINS
     Indication: PROPHYLAXIS
     Route: 048
     Dates: start: 2004
  16. ASPIRIN. [Concomitant]
     Active Substance: ASPIRIN
     Indication: EYE DISORDER
     Route: 048
     Dates: start: 20140801
  17. LEXAPRO [Concomitant]
     Active Substance: ESCITALOPRAM OXALATE
     Indication: ANXIETY
  18. KLOR-CON [Concomitant]
     Active Substance: POTASSIUM CHLORIDE
     Indication: PROPHYLAXIS
     Route: 048
     Dates: start: 20141001, end: 20150101
  19. BACTRIM [Concomitant]
     Active Substance: SULFAMETHOXAZOLE\TRIMETHOPRIM
     Indication: PRODUCT USED FOR UNKNOWN INDICATION
     Route: 065
     Dates: end: 20150218
  20. ENOXAPARIN [Concomitant]
     Active Substance: ENOXAPARIN
     Indication: THROMBOSIS PROPHYLAXIS
     Route: 058
     Dates: start: 20160311
  21. MAGNESIUM OXIDE. [Concomitant]
     Active Substance: MAGNESIUM OXIDE
     Route: 048
     Dates: start: 20160318
  22. NORCO [Concomitant]
     Active Substance: ACETAMINOPHEN\HYDROCODONE BITARTRATE
     Indication: PRODUCT USED FOR UNKNOWN INDICATION
     Route: 048
     Dates: start: 20160313
  23. PANTOPRAZOLE [Concomitant]
     Active Substance: PANTOPRAZOLE SODIUM
     Indication: PROPHYLAXIS
     Route: 048
     Dates: start: 20160314
  24. MAALOX ANTACID [Concomitant]
     Active Substance: ALUMINUM HYDROXIDE\DIMETHICONE\MAGNESIUM HYDROXIDE
     Indication: PRODUCT USED FOR UNKNOWN INDICATION
     Route: 048
     Dates: start: 20160315
  25. FENTANYL. [Suspect]
     Active Substance: FENTANYL
     Indication: PAIN
     Route: 062
     Dates: start: 20150702
  26. PRINIVIL [Concomitant]
     Active Substance: LISINOPRIL
     Indication: HYPERTENSION
     Route: 048
  27. SULFAMETHOXAZOLE-TRIMETHOPRIM (SMZ) [Concomitant]
     Active Substance: SULFAMETHOXAZOLE\TRIMETHOPRIM
     Dosage: 800/160 MG TOTAL DAILY DOSE
     Route: 048
  28. PREDNISONE. [Concomitant]
     Active Substance: PREDNISONE
     Route: 065
     Dates: start: 20150103
  29. FOSAMAX [Concomitant]
     Active Substance: ALENDRONATE SODIUM
     Indication: SUPPLEMENTATION THERAPY
     Route: 048
     Dates: start: 20141001
  30. LASIX [Concomitant]
     Active Substance: FUROSEMIDE
     Indication: PULMONARY HYPERTENSION
     Route: 048
     Dates: start: 20141008, end: 20150101
  31. AUGMENTIN [Concomitant]
     Active Substance: AMOXICILLIN\CLAVULANATE POTASSIUM
     Indication: PRODUCT USED FOR UNKNOWN INDICATION
     Route: 065
     Dates: end: 20150218
  32. RESTASIS [Concomitant]
     Active Substance: CYCLOSPORINE
     Indication: PRODUCT USED FOR UNKNOWN INDICATION
     Dosage: 1 UNIT NOT REPORTED
     Route: 047
     Dates: start: 20150403
  33. PROTONIX [Concomitant]
     Active Substance: PANTOPRAZOLE SODIUM
     Indication: PROPHYLAXIS
     Route: 042
     Dates: start: 20160311
  34. FENTANYL. [Concomitant]
     Active Substance: FENTANYL
     Indication: PLEURITIC PAIN
     Route: 042
     Dates: start: 20160311
  35. FENTANYL. [Concomitant]
     Active Substance: FENTANYL
     Route: 042
     Dates: start: 20160314
  36. NOREPINEPHRINE [Concomitant]
     Active Substance: NOREPINEPHRINE\NOREPINEPHRINE BITARTRATE
     Indication: PRODUCT USED FOR UNKNOWN INDICATION
     Dosage: 32 UNKNOWN UNIT
     Route: 042
     Dates: start: 20160311
  37. NOREPINEPHRINE [Concomitant]
     Active Substance: NOREPINEPHRINE\NOREPINEPHRINE BITARTRATE
     Dosage: 0.75 ML/HR
     Route: 042
     Dates: start: 20160311
  38. CYCLOPHOSPHAMIDE FOR INJECTION, USP [Suspect]
     Active Substance: CYCLOPHOSPHAMIDE
     Indication: VASCULITIS
     Route: 042
     Dates: start: 20141202, end: 20141202
  39. CYCLOPHOSPHAMIDE FOR INJECTION, USP [Suspect]
     Active Substance: CYCLOPHOSPHAMIDE
     Indication: SCLERODERMA
     Route: 042
     Dates: start: 20141230
  40. LISINOPRIL. [Concomitant]
     Active Substance: LISINOPRIL
     Route: 048
     Dates: start: 20150101
  41. ADCIRCA [Concomitant]
     Active Substance: TADALAFIL
     Indication: PULMONARY ARTERIAL HYPERTENSION
     Route: 048
     Dates: start: 20130927
  42. AMBIEN [Concomitant]
     Active Substance: ZOLPIDEM TARTRATE
     Indication: SEDATIVE THERAPY
     Route: 048
     Dates: start: 20140801
  43. PRINIVIL [Concomitant]
     Active Substance: LISINOPRIL
     Indication: HYPERTENSION
     Route: 048
  44. FENTANYL. [Concomitant]
     Active Substance: FENTANYL
     Route: 042
     Dates: start: 20160311
  45. ZOFRAN [Concomitant]
     Active Substance: ONDANSETRON HYDROCHLORIDE
     Indication: PRODUCT USED FOR UNKNOWN INDICATION
     Route: 048
     Dates: start: 20160311
  46. HEPARIN [Concomitant]
     Active Substance: HEPARIN SODIUM
     Indication: THROMBOSIS PROPHYLAXIS
     Dosage: 5000 UNKNOWN UNITS
     Route: 065
     Dates: start: 20160312
  47. POTASSIUM CHLORIDE. [Concomitant]
     Active Substance: POTASSIUM CHLORIDE
     Route: 048
     Dates: start: 20160316
  48. POTASSIUM CHLORIDE. [Concomitant]
     Active Substance: POTASSIUM CHLORIDE
     Route: 048
     Dates: start: 20160318
  49. CYCLOPHOSPHAMIDE FOR INJECTION, USP [Suspect]
     Active Substance: CYCLOPHOSPHAMIDE
     Route: 042
     Dates: start: 20151028, end: 20151028
  50. FENTANYL. [Suspect]
     Active Substance: FENTANYL
     Indication: SCROTAL ULCER
     Dosage: 50 (UNIT NOT REPORTED)
     Route: 062
     Dates: start: 20141126, end: 20141225
  51. VITAMIN D [Concomitant]
     Active Substance: CHOLECALCIFEROL
     Indication: PROPHYLAXIS
     Route: 048
     Dates: start: 201305
  52. OPSUMIT [Concomitant]
     Active Substance: MACITENTAN
     Indication: PULMONARY ARTERIAL HYPERTENSION
     Route: 048
     Dates: start: 20140224
  53. LASIX [Concomitant]
     Active Substance: FUROSEMIDE
     Indication: OEDEMA
     Route: 048
     Dates: start: 20160313
  54. ATROPINE SULFATE. [Concomitant]
     Active Substance: ATROPINE SULFATE
     Indication: OCULAR VASCULAR DISORDER
  55. PHOSPHORUS [Concomitant]
     Active Substance: PHOSPHORUS
     Indication: BLOOD PHOSPHORUS DECREASED
     Dosage: POWDER
     Route: 048
     Dates: start: 20160318
  56. LISINOPRIL. [Concomitant]
     Active Substance: LISINOPRIL
     Route: 048
     Dates: start: 20150109
  57. PREDNISONE. [Concomitant]
     Active Substance: PREDNISONE
     Indication: SCLERODERMA
     Route: 048
     Dates: start: 20141220, end: 20150102
  58. PREDNISONE. [Concomitant]
     Active Substance: PREDNISONE
     Route: 065
     Dates: start: 20151228
  59. VITAMIN D3 [Concomitant]
     Active Substance: CHOLECALCIFEROL
     Indication: SUPPLEMENTATION THERAPY
     Route: 048
     Dates: start: 20140201
  60. SOLU-CORTEF [Concomitant]
     Active Substance: HYDROCORTISONE SODIUM SUCCINATE
     Indication: SCLERODERMA
     Route: 042
     Dates: start: 20160311
  61. PLASMALYTE [Concomitant]
     Active Substance: ELECTROLYTES NOS
     Indication: SEPTIC SHOCK
     Route: 042
     Dates: start: 20160311
  62. SODIUM CHLORIDE. [Concomitant]
     Active Substance: SODIUM CHLORIDE
     Indication: SEPTIC SHOCK
     Route: 042
     Dates: start: 20160311
  63. ETOMIDATE. [Concomitant]
     Active Substance: ETOMIDATE
     Indication: ACUTE RESPIRATORY FAILURE
  64. HYDROCORTISONE SODIUM SUCCINATE [Concomitant]
     Active Substance: HYDROCORTISONE SODIUM SUCCINATE
     Indication: SCLERODERMA
     Route: 042
     Dates: start: 20160314
  65. POTASSIUM CHLORIDE. [Concomitant]
     Active Substance: POTASSIUM CHLORIDE
     Indication: PROPHYLAXIS
     Route: 048
     Dates: start: 20160316
  66. TYVASO [Suspect]
     Active Substance: TREPROSTINIL
     Route: 055
     Dates: start: 201401
  67. LIDOCAINE W/TETRACAINE [Concomitant]
     Active Substance: LIDOCAINE\TETRACAINE
     Indication: SCROTAL ULCER
     Route: 061
     Dates: start: 20140701, end: 20150112
  68. POLYMYXIN B SULFATE AND TRIMETHOPRIM OPHTHALM [Concomitant]
     Indication: OCULAR DISCOMFORT
     Dosage: 1 UNIT NOT REPORTED
     Route: 047
     Dates: start: 20141213, end: 20150112
  69. LISINOPRIL. [Concomitant]
     Active Substance: LISINOPRIL
     Route: 048
     Dates: start: 20141202, end: 20141231
  70. PLASMALYTE [Concomitant]
     Active Substance: ELECTROLYTES NOS
     Route: 042
     Dates: start: 20160312
  71. DOPAMINE [Concomitant]
     Active Substance: DOPAMINE\DOPAMINE HYDROCHLORIDE
     Indication: PRODUCT USED FOR UNKNOWN INDICATION
     Route: 042
     Dates: start: 20160311
  72. MIDAZOLAM [Concomitant]
     Active Substance: MIDAZOLAM\MIDAZOLAM HYDROCHLORIDE
     Indication: PRODUCT USED FOR UNKNOWN INDICATION
     Dosage: 1 ML/HR
     Route: 042
     Dates: start: 20160311
  73. VASOPRESSIN. [Concomitant]
     Active Substance: VASOPRESSIN
     Indication: PRODUCT USED FOR UNKNOWN INDICATION
     Dosage: 6 ML/HR
     Route: 042
     Dates: start: 20160311
  74. MAGNESIUM OXIDE. [Concomitant]
     Active Substance: MAGNESIUM OXIDE
     Indication: PRODUCT USED FOR UNKNOWN INDICATION
     Route: 042
     Dates: start: 20160312
  75. CYCLOPHOSPHAMIDE FOR INJECTION, USP [Suspect]
     Active Substance: CYCLOPHOSPHAMIDE
     Route: 042
     Dates: start: 20150309
  76. SULFAMETHOXAZOLE-TRIMETHOPRIM (SMZ) [Concomitant]
     Active Substance: SULFAMETHOXAZOLE\TRIMETHOPRIM
     Indication: PROPHYLAXIS
     Route: 048
     Dates: start: 20141211
  77. RITUXIMAB [Concomitant]
     Active Substance: RITUXIMAB
     Indication: COLLAGEN DISORDER
     Dosage: EVERY 4-6 TOTAL DAILY DOSE
     Route: 065
     Dates: start: 20140923, end: 20150903
  78. MVI [Concomitant]
     Active Substance: VITAMINS
     Indication: SUPPLEMENTATION THERAPY
     Dosage: 1 TABLET TOTAL DAILY DOSE
     Route: 048
     Dates: start: 2004
  79. CAPTOPRIL. [Concomitant]
     Active Substance: CAPTOPRIL
     Indication: HYPERTENSION
     Route: 048
     Dates: start: 20141125
  80. ETOMIDATE. [Concomitant]
     Active Substance: ETOMIDATE
     Indication: RESPIRATORY FAILURE
     Route: 042
     Dates: start: 20160311
  81. ALBUMIN [Concomitant]
     Active Substance: ALBUMIN HUMAN
     Indication: SEPTIC SHOCK
     Route: 042
     Dates: start: 20160313
  82. HYDROCORTISONE SODIUM SUCCINATE [Concomitant]
     Active Substance: HYDROCORTISONE SODIUM SUCCINATE
     Route: 042
     Dates: start: 20160317

REACTIONS (8)
  - Diarrhoea [Recovered/Resolved]
  - White blood cell count decreased [Recovering/Resolving]
  - Clostridium difficile infection [Recovered/Resolved]
  - Platelet count decreased [Recovering/Resolving]
  - Eye inflammation [Recovered/Resolved]
  - Weight decreased [Recovered/Resolved]
  - Blood urine present [Recovering/Resolving]
  - Periorbital cellulitis [Recovered/Resolved]

NARRATIVE: CASE EVENT DATE: 20141020
